FAERS Safety Report 4349660-4 (Version None)
Quarter: 2004Q1

REPORT INFORMATION
  Report Type: 
  Country: None (occurrence: None)
  Receive Date: 20040329
  Receipt Date: 20040211
  Transmission Date: 20041129
  Serious: No
  Sender: FDA-Public Use
  Company Number: USA040157202

PATIENT
  Age: 12 Year
  Sex: Male
  Weight: 32 kg

DRUGS (1)
  1. STRATTERA [Suspect]
     Dosage: 160 MG/IN THE MORNING
     Dates: start: 20040121

REACTIONS (4)
  - FEELING JITTERY [None]
  - MYDRIASIS [None]
  - NAUSEA [None]
  - PRESCRIBED OVERDOSE [None]
